FAERS Safety Report 25599845 (Version 1)
Quarter: 2025Q3

REPORT INFORMATION
  Report Type: Spontaneous
  Country: US (occurrence: US)
  Receive Date: 20250724
  Receipt Date: 20250724
  Transmission Date: 20251020
  Serious: Yes (Life-Threatening, Hospitalization, Other)
  Sender: AMGEN
  Company Number: US-AMGEN-USASP2025141309

PATIENT
  Age: 76 Year
  Sex: Female

DRUGS (3)
  1. PREDNISONE [Suspect]
     Active Substance: PREDNISONE
     Indication: Immunosuppression
     Route: 065
  2. TACROLIMUS [Concomitant]
     Active Substance: TACROLIMUS
  3. MYCOPHENOLATE MOFETIL [Concomitant]
     Active Substance: MYCOPHENOLATE MOFETIL

REACTIONS (9)
  - Respiratory failure [Unknown]
  - Large intestinal haemorrhage [Unknown]
  - Enterococcal infection [Unknown]
  - Pneumonia pseudomonal [Unknown]
  - Renal failure [Unknown]
  - Haemophagocytic lymphohistiocytosis [Unknown]
  - Histoplasmosis disseminated [Unknown]
  - Pneumonia bacterial [Unknown]
  - Cytomegalovirus colitis [Unknown]
